FAERS Safety Report 14105745 (Version 2)
Quarter: 2017Q4

REPORT INFORMATION
  Report Type: Spontaneous
  Country: JP (occurrence: JP)
  Receive Date: 20171018
  Receipt Date: 20171201
  Transmission Date: 20180321
  Serious: Yes (Hospitalization, Other)
  Sender: FDA-Public Use
  Company Number: JP-009507513-1707JPN001962J

PATIENT
  Age: 5 Year
  Sex: Male
  Weight: 19.4 kg

DRUGS (16)
  1. PROGRAF [Concomitant]
     Active Substance: TACROLIMUS\TACROLIMUS ANHYDROUS
     Indication: PROPHYLAXIS
     Dosage: 0.4 MG, UNK
     Route: 051
     Dates: start: 20161101
  2. METHOTREXATE. [Concomitant]
     Active Substance: METHOTREXATE
     Indication: PROPHYLAXIS
     Dosage: 5.5 MG, UNK
     Route: 051
     Dates: start: 20161103, end: 20161103
  3. FLUDARA [Concomitant]
     Active Substance: FLUDARABINE PHOSPHATE
     Dosage: UNK
     Route: 065
     Dates: start: 20161025, end: 20161029
  4. METHOTREXATE. [Concomitant]
     Active Substance: METHOTREXATE
     Dosage: 5.5 MG, UNK
     Route: 051
     Dates: start: 20161108, end: 20161108
  5. CEFPIROME SULFATE [Concomitant]
     Active Substance: CEFPIROME SULFATE
     Dosage: 2100 MG, UNK
     Route: 051
     Dates: start: 20161117, end: 20161124
  6. BUSULFEX [Concomitant]
     Active Substance: BUSULFAN
     Dosage: 85 MG, UNK
     Route: 051
     Dates: start: 20161014, end: 20161031
  7. CANCIDAS [Suspect]
     Active Substance: CASPOFUNGIN ACETATE
     Dosage: 40 MG, QD
     Route: 041
     Dates: start: 20161105, end: 20161130
  8. ACICLOVIR [Concomitant]
     Active Substance: ACYCLOVIR
     Indication: PROPHYLAXIS
     Dosage: 300 MG, UNK
     Route: 051
  9. GRAN [Concomitant]
     Active Substance: FILGRASTIM
     Indication: PROPHYLAXIS
     Dosage: 225 MICROGRAM, UNK
     Route: 051
     Dates: start: 20161108, end: 20161117
  10. METHOTREXATE. [Concomitant]
     Active Substance: METHOTREXATE
     Dosage: 5.5 MG, UNK
     Route: 051
     Dates: start: 20161105, end: 20161105
  11. SOLU-CORTEF [Concomitant]
     Active Substance: HYDROCORTISONE SODIUM SUCCINATE
     Dosage: 100 MG, UNK
     Route: 051
     Dates: start: 20161119, end: 20161119
  12. MICAFUNGIN SODIUM [Concomitant]
     Active Substance: MICAFUNGIN SODIUM
     Indication: FEBRILE NEUTROPENIA
     Dosage: 25 MG, UNK
     Route: 041
     Dates: start: 20161014, end: 20161031
  13. CARBOPLATIN. [Concomitant]
     Active Substance: CARBOPLATIN
     Dosage: UNK
     Route: 051
     Dates: start: 20161014, end: 20161018
  14. MEROPENEM. [Concomitant]
     Active Substance: MEROPENEM
     Dosage: 2400 MG, UNK
     Route: 051
     Dates: start: 20161101, end: 20161117
  15. VEPESID [Concomitant]
     Active Substance: ETOPOSIDE
     Dosage: UNK
     Route: 065
     Dates: start: 20161014, end: 20161018
  16. CANCIDAS [Suspect]
     Active Substance: CASPOFUNGIN ACETATE
     Indication: FEBRILE NEUTROPENIA
     Dosage: 50 MG, QD
     Route: 041
     Dates: start: 20161031

REACTIONS (5)
  - Hepatic function abnormal [Recovered/Resolved]
  - Febrile neutropenia [Recovered/Resolved]
  - Rash [Recovered/Resolved]
  - Pyrexia [Recovered/Resolved]
  - Graft versus host disease [Recovered/Resolved]

NARRATIVE: CASE EVENT DATE: 20161031
